FAERS Safety Report 5871814-6 (Version None)
Quarter: 2008Q3

REPORT INFORMATION
  Report Type: 
  Country: None (occurrence: None)
  Receive Date: 20080905
  Receipt Date: 20071205
  Transmission Date: 20090109
  Serious: No
  Sender: FDA-Public Use
  Company Number: US-TYCO HEALTHCARE/MALLINCKRODT-T200701517

PATIENT

DRUGS (1)
  1. SODIUM IODIDE I 131 /THERAPY/ CAP [Suspect]
     Indication: RADIOACTIVE IODINE THERAPY
     Dosage: 150 MCI, SINGLE
     Route: 048
     Dates: start: 20071205, end: 20071205

REACTIONS (2)
  - CHOKING [None]
  - DRUG DISPENSING ERROR [None]
